FAERS Safety Report 5593552-X (Version None)
Quarter: 2007Q4

REPORT INFORMATION
  Report Type: 
  Country: None (occurrence: None)
  Receive Date: 20071214
  Receipt Date: 20061123
  Transmission Date: 20080405
  Serious: Yes (Hospitalization, Other)
  Sender: FDA-Public Use
  Company Number: 2006138603

PATIENT
  Age: 49 Year
  Sex: Female
  Weight: 54.4316 kg

DRUGS (2)
  1. XANAX [Suspect]
     Indication: ANXIETY
     Dosage: 3 MG (1 MG, 3 IN 1 D)
     Dates: start: 19920101
  2. KLONOPIN [Suspect]
     Indication: ANXIETY

REACTIONS (11)
  - ACTIVITIES OF DAILY LIVING IMPAIRED [None]
  - ANXIETY [None]
  - BLOOD GLUCOSE DECREASED [None]
  - DIARRHOEA [None]
  - DYSGEUSIA [None]
  - HYPOTENSION [None]
  - INSOMNIA [None]
  - NAUSEA [None]
  - TREMOR [None]
  - UNEVALUABLE EVENT [None]
  - WITHDRAWAL SYNDROME [None]
